FAERS Safety Report 20197508 (Version 1)
Quarter: 2021Q4

REPORT INFORMATION
  Report Type: Spontaneous
  Country: US (occurrence: US)
  Receive Date: 20211217
  Receipt Date: 20211217
  Transmission Date: 20220303
  Serious: No
  Sender: FDA-Public Use
  Company Number: US-PACIRA-2021000300

PATIENT
  Age: 61 Year
  Sex: Female
  Weight: 55 kg

DRUGS (3)
  1. EXPAREL [Suspect]
     Active Substance: BUPIVACAINE
     Dosage: 20 ML WITH 30 ML OF 0.5% LIDOCAINE AND 10 ML OF NS
     Route: 065
  2. LIDOCAINE [Suspect]
     Active Substance: LIDOCAINE
     Dosage: 30 ML OF 0.5% LIDOCAINE WITH 20 ML OF EXPAREL AND 10 ML OF NS
     Route: 065
  3. SODIUM CHLORIDE [Concomitant]
     Active Substance: SODIUM CHLORIDE
     Dosage: 10 ML WITH 20 ML OF EXPAREL AND 30 ML OF LIDOCAINE
     Route: 065

REACTIONS (2)
  - No adverse event [Unknown]
  - Labelled drug-drug interaction medication error [Recovered/Resolved]
